FAERS Safety Report 6856429-5 (Version None)
Quarter: 2010Q3

REPORT INFORMATION
  Report Type: 
  Country: None (occurrence: None)
  Receive Date: 20100719
  Receipt Date: 20100712
  Transmission Date: 20110219
  Serious: Yes (Life-Threatening)
  Sender: FDA-Public Use
  Company Number: JP-ROCHE-698098

PATIENT
  Sex: Male
  Weight: 56 kg

DRUGS (10)
  1. ACTEMRA [Suspect]
     Indication: RHEUMATOID ARTHRITIS
     Dosage: NOTE: DOSAGE IS UNCERTAIN.
     Route: 041
     Dates: start: 20091201, end: 20091201
  2. ACTEMRA [Suspect]
     Dosage: NOTE: DOSAGE IS UNCERTAIN.
     Route: 041
     Dates: start: 20100105, end: 20100105
  3. ACTEMRA [Suspect]
     Dosage: NOTE: DOSAGE IS UNCERTAIN.
     Route: 041
     Dates: start: 20100202, end: 20100202
  4. ACTEMRA [Suspect]
     Dosage: NOTE: DOSAGE IS UNCERTAIN.
     Route: 041
     Dates: start: 20100304, end: 20100304
  5. PREDONINE [Concomitant]
     Route: 048
     Dates: start: 20000101
  6. RIMATIL [Concomitant]
     Route: 048
     Dates: start: 20000101
  7. METOLATE [Concomitant]
     Route: 048
     Dates: start: 20000101
  8. LOXONIN [Concomitant]
     Route: 048
     Dates: start: 20000101
  9. CLARITHROMYCIN [Concomitant]
     Route: 048
  10. MUCOSTA [Concomitant]
     Dosage: DOSE FORM: PERORAL AGENT
     Route: 048

REACTIONS (3)
  - INTERSTITIAL LUNG DISEASE [None]
  - LOWER RESPIRATORY TRACT INFECTION [None]
  - PLEURAL EFFUSION [None]
